FAERS Safety Report 6597794-6 (Version None)
Quarter: 2010Q1

REPORT INFORMATION
  Report Type: 
  Country: None (occurrence: None)
  Receive Date: 20100216
  Receipt Date: 20100209
  Transmission Date: 20100710
  Serious: Yes (Death)
  Sender: FDA-Public Use
  Company Number: 2009SP039429

PATIENT
  Age: 51 Year
  Sex: Female

DRUGS (1)
  1. TEMODAR [Suspect]
     Indication: BRAIN NEOPLASM
     Dosage: 130 MG;QD;PO
     Route: 048
     Dates: start: 20091118, end: 20091121

REACTIONS (1)
  - SEPSIS [None]
